FAERS Safety Report 5919758-5 (Version None)
Quarter: 2008Q4

REPORT INFORMATION
  Report Type: 
  Country: None (occurrence: None)
  Receive Date: 20081015
  Receipt Date: 20081003
  Transmission Date: 20090506
  Serious: Yes (Other)
  Sender: FDA-Public Use
  Company Number: FR-GENENTECH-269580

PATIENT
  Age: 30 Year
  Sex: Male

DRUGS (3)
  1. RSHAPO2L-TRAIL [Suspect]
     Indication: NEOPLASM MALIGNANT
  2. BEVACIZUMAB [Suspect]
     Indication: NEOPLASM MALIGNANT
  3. ACETAMINOPHEN [Suspect]

REACTIONS (1)
  - MYALGIA [None]
